FAERS Safety Report 15710573 (Version 2)
Quarter: 2019Q1

REPORT INFORMATION
  Report Type: Spontaneous
  Country: US (occurrence: US)
  Receive Date: 20181211
  Receipt Date: 20190107
  Transmission Date: 20190417
  Serious: No
  Sender: FDA-Public Use
  Company Number: US-PFIZER INC-2016556605

PATIENT
  Age: 60 Year
  Sex: Male

DRUGS (2)
  1. RAPAMUNE [Suspect]
     Active Substance: SIROLIMUS
     Indication: LIVER TRANSPLANT REJECTION
     Dosage: 2 MG, (2 TABLETS DAILY)
     Route: 048
  2. RAPAMUNE [Suspect]
     Active Substance: SIROLIMUS
     Dosage: 4 MG, 2X/DAY

REACTIONS (2)
  - Drug ineffective for unapproved indication [Unknown]
  - Prescribed overdose [Unknown]
